FAERS Safety Report 5104152-X (Version None)
Quarter: 2006Q3

REPORT INFORMATION
  Report Type: 
  Country: None (occurrence: None)
  Receive Date: 20060911
  Receipt Date: 20060829
  Transmission Date: 20061208
  Serious: Yes (Death)
  Sender: FDA-Public Use
  Company Number: 2006-02092

PATIENT
  Age: 54 Year
  Sex: Male

DRUGS (4)
  1. VELCADE [Suspect]
     Indication: MULTIPLE MYELOMA
     Dosage: 1.30 MG/M2, INTRAVENOUS
     Route: 042
     Dates: start: 20060321, end: 20060505
  2. ZOFRAN [Concomitant]
  3. ALLOPURINOL [Concomitant]
  4. PAMIDRONATE DISODIUM [Concomitant]

REACTIONS (4)
  - DISEASE PROGRESSION [None]
  - ESCHERICHIA SEPSIS [None]
  - MULTI-ORGAN FAILURE [None]
  - MULTIPLE MYELOMA [None]
